FAERS Safety Report 10669398 (Version 2)
Quarter: 2016Q4

REPORT INFORMATION
  Report Type: Spontaneous
  Country: US (occurrence: US)
  Receive Date: 20141222
  Receipt Date: 20161007
  Transmission Date: 20170206
  Serious: No
  Sender: FDA-Public Use
  Company Number: US-SA-2014SA130914

PATIENT
  Sex: Female

DRUGS (11)
  1. ASPIRIN. [Concomitant]
     Active Substance: ASPIRIN
  2. VITAMIN E [Concomitant]
     Active Substance: .ALPHA.-TOCOPHEROL
  3. AUBAGIO [Suspect]
     Active Substance: TERIFLUNOMIDE
     Indication: MULTIPLE SCLEROSIS
     Route: 048
     Dates: start: 20140912
  4. BACLOFEN. [Concomitant]
     Active Substance: BACLOFEN
  5. TYLENOL [Concomitant]
     Active Substance: ACETAMINOPHEN
  6. LISINOPRIL. [Concomitant]
     Active Substance: LISINOPRIL
  7. VITAMIN C [Concomitant]
     Active Substance: ASCORBIC ACID
  8. TRAZODONE [Concomitant]
     Active Substance: TRAZODONE HYDROCHLORIDE
  9. MINERALS NOS/VITAMINS NOS/AMINO ACIDS NOS [Concomitant]
  10. DONEPEZIL. [Concomitant]
     Active Substance: DONEPEZIL
  11. AUBAGIO [Suspect]
     Active Substance: TERIFLUNOMIDE
     Indication: MULTIPLE SCLEROSIS
     Route: 048
     Dates: start: 20140912

REACTIONS (2)
  - Muscle spasms [Unknown]
  - Depression [Unknown]
